FAERS Safety Report 19869862 (Version 5)
Quarter: 2022Q3

REPORT INFORMATION
  Report Type: Spontaneous
  Country: US (occurrence: US)
  Receive Date: 20210922
  Receipt Date: 20220819
  Transmission Date: 20221027
  Serious: Yes (Other)
  Sender: FDA-Public Use
  Company Number: US-BRISTOL-MYERS SQUIBB COMPANY-BMS-2021-096039

PATIENT
  Age: 57 Year
  Sex: Female

DRUGS (3)
  1. ORENCIA [Suspect]
     Active Substance: ABATACEPT
     Indication: Endometriosis
     Route: 058
     Dates: start: 20160818
  2. ORENCIA [Suspect]
     Active Substance: ABATACEPT
     Indication: Rheumatoid arthritis
     Dosage: 125 MILLIGRAM, QWK
     Route: 058
     Dates: start: 20170425
  3. LUPRON DEPOT [Concomitant]
     Active Substance: LEUPROLIDE ACETATE
     Indication: Product used for unknown indication
     Dosage: LUPRON ADULT 3-MONTH DEPOT
     Route: 065

REACTIONS (5)
  - Osteomyelitis [Unknown]
  - Adverse event [Unknown]
  - Joint swelling [Unknown]
  - Arthralgia [Unknown]
  - Dental discomfort [Unknown]

NARRATIVE: CASE EVENT DATE: 20210801
